FAERS Safety Report 18940344 (Version 1)
Quarter: 2021Q1

REPORT INFORMATION
  Report Type: Spontaneous
  Country: US (occurrence: US)
  Receive Date: 20210225
  Receipt Date: 20210225
  Transmission Date: 20210420
  Serious: Yes (Death)
  Sender: FDA-Public Use
  Company Number: None

PATIENT
  Age: 79 Year
  Sex: Female
  Weight: 64.35 kg

DRUGS (18)
  1. DAURISMO [Suspect]
     Active Substance: GLASDEGIB
     Indication: ACUTE MYELOID LEUKAEMIA
     Route: 048
     Dates: start: 20201204, end: 20210225
  2. ASPIRIN. [Concomitant]
     Active Substance: ASPIRIN
  3. CRESEMBA [Concomitant]
     Active Substance: ISAVUCONAZONIUM SULFATE
  4. POTASSIUM CITRATE ER [Concomitant]
     Active Substance: POTASSIUM CITRATE
  5. CARBIDOPA?LEVODOPA [Concomitant]
     Active Substance: CARBIDOPA\LEVODOPA
  6. CLONIDINE HCL [Concomitant]
     Active Substance: CLONIDINE HYDROCHLORIDE
  7. LEVOFLOXACIN. [Concomitant]
     Active Substance: LEVOFLOXACIN
  8. CARVEDILOL. [Concomitant]
     Active Substance: CARVEDILOL
  9. CLARITIN [Concomitant]
     Active Substance: LORATADINE
  10. KEPPRA [Concomitant]
     Active Substance: LEVETIRACETAM
  11. ACYCLOVIR. [Concomitant]
     Active Substance: ACYCLOVIR
  12. MAGOX 400 [Concomitant]
     Active Substance: MAGNESIUM OXIDE
  13. LEVOTHYROXINE SODIUM. [Concomitant]
     Active Substance: LEVOTHYROXINE SODIUM
  14. SELEGILINE HCL [Concomitant]
     Active Substance: SELEGILINE HYDROCHLORIDE
  15. PRAVASTATIN SODIUM. [Concomitant]
     Active Substance: PRAVASTATIN SODIUM
  16. CYTARABINE. [Concomitant]
     Active Substance: CYTARABINE
  17. ESCITALOPRAM OXALATE. [Concomitant]
     Active Substance: ESCITALOPRAM OXALATE
  18. HYDROCORTISONE ACETATE. [Concomitant]
     Active Substance: HYDROCORTISONE ACETATE

REACTIONS (1)
  - Death [None]

NARRATIVE: CASE EVENT DATE: 20210225
